FAERS Safety Report 5744635-2 (Version None)
Quarter: 2008Q2

REPORT INFORMATION
  Report Type: 
  Country: None (occurrence: None)
  Receive Date: 20080516
  Receipt Date: 20080505
  Transmission Date: 20081010
  Serious: Yes (Other)
  Sender: FDA-Public Use
  Company Number: OPER20080092

PATIENT
  Age: 90 Year
  Sex: Male

DRUGS (3)
  1. OPANA ER [Suspect]
     Indication: OSTEOARTHRITIS
     Dosage: 10 MG, 1 TAB BID, PER ORAL
     Route: 048
     Dates: start: 20080430, end: 20080502
  2. GLYBURIDE [Concomitant]
  3. ASPIRIN [Concomitant]

REACTIONS (3)
  - CONFUSIONAL STATE [None]
  - INCORRECT ROUTE OF DRUG ADMINISTRATION [None]
  - SOMNOLENCE [None]
